FAERS Safety Report 17477248 (Version 1)
Quarter: 2020Q1

REPORT INFORMATION
  Report Type: Report from Study
  Country: IE (occurrence: IE)
  Receive Date: 20200228
  Receipt Date: 20200228
  Transmission Date: 20200409
  Serious: Yes (Hospitalization)
  Sender: FDA-Public Use
  Company Number: IE-JNJFOC-20191141033

PATIENT
  Age: 77 Year
  Sex: Female

DRUGS (12)
  1. FLUCONAZOLE. [Concomitant]
     Active Substance: FLUCONAZOLE
  2. SPIRIVA [Concomitant]
     Active Substance: TIOTROPIUM BROMIDE MONOHYDRATE
  3. PYRIDOXINE [Concomitant]
     Active Substance: PYRIDOXINE
  4. PARACETAMOL [Concomitant]
     Active Substance: ACETAMINOPHEN
  5. ELTROXIN [Concomitant]
     Active Substance: LEVOTHYROXINE
  6. ALENDRONATE SODIUM. [Concomitant]
     Active Substance: ALENDRONATE SODIUM
  7. PREDNISOLONE. [Concomitant]
     Active Substance: PREDNISOLONE
  8. STELARA [Suspect]
     Active Substance: USTEKINUMAB
     Indication: TEMPORAL ARTERITIS
     Route: 058
     Dates: start: 20190806, end: 20190903
  9. ISONIAZID. [Concomitant]
     Active Substance: ISONIAZID
  10. VALSARTAN. [Concomitant]
     Active Substance: VALSARTAN
  11. SERETIDE [Concomitant]
     Active Substance: FLUTICASONE PROPIONATE\SALMETEROL XINAFOATE
  12. VENTOLIN [Concomitant]
     Active Substance: ALBUTEROL SULFATE

REACTIONS (7)
  - Gout [Unknown]
  - Product use in unapproved indication [Unknown]
  - Panic attack [Unknown]
  - Off label use [Unknown]
  - Productive cough [Not Recovered/Not Resolved]
  - Cellulitis [Unknown]
  - Dyspnoea [Unknown]

NARRATIVE: CASE EVENT DATE: 2019
